FAERS Safety Report 12897197 (Version 2)
Quarter: 2017Q1

REPORT INFORMATION
  Report Type: Spontaneous
  Country: US (occurrence: US)
  Receive Date: 20161031
  Receipt Date: 20170303
  Transmission Date: 20170428
  Serious: Yes (Other)
  Sender: FDA-Public Use
  Company Number: US-CELGENEUS-USA-2016105016

PATIENT
  Age: 68 Year
  Sex: Female

DRUGS (2)
  1. OTEZLA [Suspect]
     Active Substance: APREMILAST
     Indication: PSORIASIS
     Dosage: 60 MILLIGRAM
     Route: 048
     Dates: start: 20160726, end: 20160930
  2. OTEZLA [Suspect]
     Active Substance: APREMILAST
     Dosage: 60 MILLIGRAM
     Route: 048
     Dates: start: 20161015

REACTIONS (1)
  - Vulval cancer stage 0 [Recovered/Resolved]

NARRATIVE: CASE EVENT DATE: 201608
